FAERS Safety Report 10845272 (Version 1)
Quarter: 2015Q1

REPORT INFORMATION
  Report Type: Report from Study
  Country: US (occurrence: US)
  Receive Date: 20150220
  Receipt Date: 20150220
  Transmission Date: 20150721
  Serious: No
  Sender: FDA-Public Use
  Company Number: US-ABBVIE-14P-163-1297171-00

PATIENT
  Sex: Female

DRUGS (4)
  1. INFLUENZA VACCINE [Concomitant]
     Active Substance: INFLUENZA VIRUS VACCINE
     Indication: PRODUCT USED FOR UNKNOWN INDICATION
     Dates: start: 201410
  2. PREDNISONE. [Concomitant]
     Active Substance: PREDNISONE
     Indication: HYPERSENSITIVITY
     Dosage: LAST NIGHT
  3. HUMIRA [Suspect]
     Active Substance: ADALIMUMAB
     Indication: RHEUMATOID ARTHRITIS
     Route: 065
     Dates: start: 201409, end: 20141010
  4. PREDNISONE. [Concomitant]
     Active Substance: PREDNISONE
     Dosage: TODAY

REACTIONS (13)
  - Candida infection [Not Recovered/Not Resolved]
  - Swollen tongue [Unknown]
  - Mouth swelling [Unknown]
  - Ageusia [Unknown]
  - Gingival swelling [Unknown]
  - Neck pain [Unknown]
  - Lip swelling [Unknown]
  - Oropharyngeal pain [Unknown]
  - Burning mouth syndrome [Not Recovered/Not Resolved]
  - Vitamin B12 decreased [Unknown]
  - Drug hypersensitivity [Unknown]
  - Dysgeusia [Unknown]
  - Dysgeusia [Unknown]

NARRATIVE: CASE EVENT DATE: 2014
